FAERS Safety Report 25600160 (Version 1)
Quarter: 2025Q3

REPORT INFORMATION
  Report Type: Spontaneous
  Country: US (occurrence: US)
  Receive Date: 20250724
  Receipt Date: 20250724
  Transmission Date: 20251020
  Serious: No
  Sender: ELI LILLY AND COMPANY
  Company Number: US-ELI_LILLY_AND_COMPANY-US202502019769

PATIENT
  Age: 58 Year
  Sex: Male

DRUGS (3)
  1. IXEKIZUMAB [Suspect]
     Active Substance: IXEKIZUMAB
     Indication: Psoriasis
     Route: 058
     Dates: start: 20240827
  2. IXEKIZUMAB [Suspect]
     Active Substance: IXEKIZUMAB
     Route: 058
  3. IXEKIZUMAB [Suspect]
     Active Substance: IXEKIZUMAB
     Dosage: 80 MG, MONTHLY (1/M) ( EVERY 4 WEEKS)
     Route: 058

REACTIONS (2)
  - Tooth fracture [Unknown]
  - Nail growth abnormal [Unknown]
